FAERS Safety Report 8592072-8 (Version None)
Quarter: 2012Q3

REPORT INFORMATION
  Report Type: 
  Country: None (occurrence: None)
  Receive Date: 20120814
  Receipt Date: 20120809
  Transmission Date: 20120928
  Serious: Yes (Death, Hospitalization)
  Sender: FDA-Public Use
  Company Number: US-ASTELLAS-2011US002416

PATIENT
  Sex: Female
  Weight: 59 kg

DRUGS (20)
  1. ZOFRAN [Concomitant]
     Indication: PRODUCT USED FOR UNKNOWN INDICATION
     Dosage: 8 MG, TID
     Route: 048
     Dates: start: 20090206
  2. FLUOCINONIDE [Concomitant]
     Indication: PSORIASIS
     Dosage: 0.05 %, BID
     Route: 065
     Dates: start: 20100128
  3. VALCYTE [Concomitant]
     Dosage: 450 MG, QOD
     Route: 048
  4. FERROUS SULFATE TAB [Concomitant]
     Indication: PRODUCT USED FOR UNKNOWN INDICATION
     Dosage: 325 MG, BID
     Route: 048
  5. IMURAN [Concomitant]
     Indication: RENAL TRANSPLANT
     Dosage: 125 MG, UID/QD
     Route: 048
     Dates: start: 20100804
  6. IMURAN [Concomitant]
     Dosage: 100 MG, UID/QD
     Route: 048
  7. BACTRIM [Concomitant]
     Indication: RENAL TRANSPLANT
     Dosage: 400/80 MG, UID/QD
     Route: 048
     Dates: start: 20100804
  8. LEVOTHYROXINE SODIUM [Concomitant]
     Indication: HYPOTHYROIDISM
     Dosage: 50 UG, UID/QD
     Route: 048
  9. PROGRAF [Suspect]
     Indication: RENAL TRANSPLANT
     Dosage: 1 MG, BID
     Route: 048
     Dates: start: 20100804, end: 20110901
  10. PRAVACHOL [Concomitant]
     Indication: PRODUCT USED FOR UNKNOWN INDICATION
     Dosage: 20 MG, QHS
     Route: 065
  11. PRILOSEC [Concomitant]
     Indication: PRODUCT USED FOR UNKNOWN INDICATION
     Dosage: 40 MG, UID/QD
     Route: 048
  12. CALCIUM CARBONATE [Concomitant]
     Indication: PRODUCT USED FOR UNKNOWN INDICATION
     Dosage: 1000 MG, BID
     Route: 048
     Dates: start: 20100804
  13. PROTONIX [Concomitant]
     Indication: DYSPEPSIA
     Dosage: 40 MG, UID/QD
     Route: 048
     Dates: start: 20100804
  14. ESTRATEST [Concomitant]
     Indication: HORMONE THERAPY
     Dosage: 1.25/2.5 MG, UID/QD
     Route: 048
  15. IRON [Concomitant]
     Indication: BLOOD IRON DECREASED
     Dosage: 65 MG, BID
     Route: 048
     Dates: start: 20100804
  16. XANAX [Concomitant]
     Indication: PRODUCT USED FOR UNKNOWN INDICATION
     Dosage: 1 MG QHS, PRN
     Route: 048
  17. ESTRADIOL [Concomitant]
     Indication: PRODUCT USED FOR UNKNOWN INDICATION
     Dosage: 0.5 MG, UNKNOWN/D
     Route: 065
     Dates: start: 20100303
  18. HEXAVITAMIN                        /07504101/ [Concomitant]
     Indication: PRODUCT USED FOR UNKNOWN INDICATION
     Dosage: 1 DF, BID
     Route: 048
     Dates: start: 20100804
  19. SYNTHROID [Concomitant]
     Indication: PRODUCT USED FOR UNKNOWN INDICATION
     Dosage: 50 UG, UID/QD
     Route: 048
  20. VALCYTE [Concomitant]
     Indication: PRODUCT USED FOR UNKNOWN INDICATION
     Dosage: 900 MG, UID/QD
     Route: 048

REACTIONS (5)
  - URINARY TRACT INFECTION [None]
  - BLOOD PHOSPHORUS INCREASED [None]
  - NASOPHARYNGITIS [None]
  - PYELONEPHRITIS [None]
  - DEATH [None]
